FAERS Safety Report 19025070 (Version 1)
Quarter: 2021Q1

REPORT INFORMATION
  Report Type: Spontaneous
  Country: US (occurrence: US)
  Receive Date: 20210316
  Receipt Date: 20210316
  Transmission Date: 20210420
  Serious: No
  Sender: FDA-Public Use
  Company Number: None

PATIENT
  Age: 76 Year
  Sex: Male
  Weight: 104.6 kg

DRUGS (1)
  1. DULOXETINE (DULOXETINE HCL 20MG CAP, ORAL) [Suspect]
     Active Substance: DULOXETINE HYDROCHLORIDE
     Route: 048
     Dates: start: 20130424, end: 20190410

REACTIONS (1)
  - Diarrhoea [None]

NARRATIVE: CASE EVENT DATE: 20190510
